FAERS Safety Report 8801918 (Version 2)
Quarter: 2015Q1

REPORT INFORMATION
  Report Type: Report from Study
  Country: US (occurrence: US)
  Receive Date: 20120921
  Receipt Date: 20150316
  Transmission Date: 20150721
  Serious: Yes (Death)
  Sender: FDA-Public Use
  Company Number: US-ROCHE-1102434

PATIENT
  Sex: Female
  Weight: 64.01 kg

DRUGS (21)
  1. HEXADROL [Concomitant]
     Active Substance: DEXAMETHASONE
     Route: 065
  2. PREVACID [Concomitant]
     Active Substance: LANSOPRAZOLE
  3. PROCRIT [Concomitant]
     Active Substance: ERYTHROPOIETIN
     Route: 065
  4. PEGFILGRASTIM [Concomitant]
     Active Substance: PEGFILGRASTIM
     Route: 058
  5. AVASTIN [Suspect]
     Active Substance: BEVACIZUMAB
     Route: 042
  6. ABRAXANE [Concomitant]
     Active Substance: PACLITAXEL
     Route: 065
  7. BENADRYL [Concomitant]
     Active Substance: DIPHENHYDRAMINE HYDROCHLORIDE
     Route: 042
  8. DECADRON [Concomitant]
     Active Substance: DEXAMETHASONE
     Route: 065
  9. WARFARIN [Concomitant]
     Active Substance: WARFARIN
     Route: 065
  10. PROCRIT [Concomitant]
     Active Substance: ERYTHROPOIETIN
     Route: 065
  11. ZOMETA [Concomitant]
     Active Substance: ZOLEDRONIC ACID
     Route: 042
  12. SYNTHROID [Concomitant]
     Active Substance: LEVOTHYROXINE SODIUM
  13. SOLU-CORTEF [Concomitant]
     Active Substance: HYDROCORTISONE SODIUM SUCCINATE
     Route: 042
  14. AMBIEN [Concomitant]
     Active Substance: ZOLPIDEM TARTRATE
  15. ZYRTEC [Concomitant]
     Active Substance: CETIRIZINE HYDROCHLORIDE
  16. TYLENOL [Concomitant]
     Active Substance: ACETAMINOPHEN
  17. AVASTIN [Suspect]
     Active Substance: BEVACIZUMAB
     Indication: BREAST CANCER FEMALE
     Route: 042
     Dates: start: 20050412
  18. ABRAXANE [Concomitant]
     Active Substance: PACLITAXEL
     Route: 042
  19. CARBOPLATIN. [Concomitant]
     Active Substance: CARBOPLATIN
  20. ATROPINE [Concomitant]
     Active Substance: ATROPINE
     Route: 042
  21. PROCRIT [Concomitant]
     Active Substance: ERYTHROPOIETIN
     Route: 065

REACTIONS (12)
  - Abdominal discomfort [Unknown]
  - Pain in extremity [Recovered/Resolved]
  - Respiratory tract congestion [Unknown]
  - Decreased appetite [Unknown]
  - Death [Fatal]
  - Productive cough [Unknown]
  - Urinary incontinence [Unknown]
  - Diarrhoea [Unknown]
  - Fatigue [Unknown]
  - Dyspnoea [Unknown]
  - Constipation [Unknown]
  - Bone pain [Unknown]
